FAERS Safety Report 7049491-0 (Version None)
Quarter: 2010Q4

REPORT INFORMATION
  Report Type: 
  Country: None (occurrence: None)
  Receive Date: 20101012
  Receipt Date: 20100927
  Transmission Date: 20110411
  Serious: Yes (Other)
  Sender: FDA-Public Use
  Company Number: AUR-APL-2010-02284

PATIENT
  Age: 70 Year
  Sex: Female

DRUGS (6)
  1. LISINOPRIL [Suspect]
     Indication: HYPERTENSION
     Dosage: 2.5MG,
     Dates: end: 20100823
  2. RITUXIMAB [Suspect]
     Indication: RHEUMATOID ARTHRITIS
     Dosage: 1000MG, IV
     Route: 042
     Dates: start: 20100813
  3. AMITRIPTYLINE [Concomitant]
  4. MEBEVERINE [Concomitant]
  5. SULPHASALAZINE [Concomitant]
  6. TRAMADOL HCL [Concomitant]

REACTIONS (3)
  - DYSPNOEA [None]
  - MOUTH ULCERATION [None]
  - SWOLLEN TONGUE [None]
